FAERS Safety Report 17473353 (Version 1)
Quarter: 2020Q1

REPORT INFORMATION
  Report Type: Report from Study
  Country: CO (occurrence: CO)
  Receive Date: 20200228
  Receipt Date: 20200228
  Transmission Date: 20200409
  Serious: Yes (Hospitalization, Other)
  Sender: FDA-Public Use
  Company Number: CO-JNJFOC-20191138109

PATIENT
  Age: 74 Year

DRUGS (2)
  1. CYCLOSPORINE. [Concomitant]
     Active Substance: CYCLOSPORINE
     Indication: PSORIASIS
  2. STELARA [Suspect]
     Active Substance: USTEKINUMAB
     Indication: PSORIASIS
     Route: 058
     Dates: start: 20150213

REACTIONS (6)
  - Generalised oedema [Unknown]
  - Bone fissure [Unknown]
  - Pneumonia [Not Recovered/Not Resolved]
  - Fall [Unknown]
  - Chest injury [Unknown]
  - Anaemia [Unknown]

NARRATIVE: CASE EVENT DATE: 20151226
